FAERS Safety Report 23418395 (Version 1)
Quarter: 2024Q1

REPORT INFORMATION
  Report Type: Spontaneous
  Country: CA (occurrence: CA)
  Receive Date: 20240118
  Receipt Date: 20240118
  Transmission Date: 20240409
  Serious: Yes (Death)
  Sender: FDA-Public Use
  Company Number: CA-002147023-NVSC2024CA010254

PATIENT
  Age: 77 Year
  Sex: Female
  Weight: 56 kg

DRUGS (1)
  1. KYMRIAH [Suspect]
     Active Substance: TISAGENLECLEUCEL
     Indication: Diffuse large B-cell lymphoma stage IV
     Dosage: UNK UNK, ONCE/SINGLE
     Route: 042

REACTIONS (3)
  - Clostridium difficile colitis [Fatal]
  - Immune effector cell-associated neurotoxicity syndrome [Fatal]
  - Neurological decompensation [Fatal]
